FAERS Safety Report 16411364 (Version 1)
Quarter: 2019Q2

REPORT INFORMATION
  Report Type: Spontaneous
  Country: US (occurrence: US)
  Receive Date: 20190610
  Receipt Date: 20190610
  Transmission Date: 20190711
  Serious: No
  Sender: FDA-Public Use
  Company Number: US-ELI_LILLY_AND_COMPANY-US201905010906

PATIENT
  Sex: Female

DRUGS (1)
  1. EMGALITY [Suspect]
     Active Substance: GALCANEZUMAB-GNLM
     Indication: PRODUCT USED FOR UNKNOWN INDICATION
     Dosage: UNK, UNKNOWN
     Route: 065
     Dates: start: 20190518

REACTIONS (7)
  - Injection site rash [Unknown]
  - Feeling hot [Recovered/Resolved]
  - Injection site erythema [Unknown]
  - Erythema [Recovered/Resolved]
  - Dizziness [Unknown]
  - Nausea [Unknown]
  - Injection site pain [Unknown]
